FAERS Safety Report 19722831 (Version 2)
Quarter: 2021Q3

REPORT INFORMATION
  Report Type: Spontaneous
  Country: US (occurrence: US)
  Receive Date: 20210819
  Receipt Date: 20210901
  Transmission Date: 20211014
  Serious: No
  Sender: FDA-Public Use
  Company Number: US-ASTRAZENECA-2021A645475

PATIENT
  Sex: Male
  Weight: 97.5 kg

DRUGS (4)
  1. FASENRA [Suspect]
     Active Substance: BENRALIZUMAB
     Indication: ANAPHYLACTIC REACTION
     Route: 058
     Dates: start: 202006, end: 202106
  2. FASENRA [Suspect]
     Active Substance: BENRALIZUMAB
     Indication: ASTHMA
     Dosage: UNKNOWN
     Route: 058
     Dates: start: 202106, end: 202106
  3. FASENRA [Suspect]
     Active Substance: BENRALIZUMAB
     Indication: ANAPHYLACTIC REACTION
     Dosage: UNKNOWN
     Route: 058
     Dates: start: 202106, end: 202106
  4. FASENRA [Suspect]
     Active Substance: BENRALIZUMAB
     Indication: ASTHMA
     Route: 058
     Dates: start: 202006, end: 202106

REACTIONS (3)
  - Burning sensation [Unknown]
  - Weight decreased [Unknown]
  - Pain [Unknown]
